FAERS Safety Report 21490594 (Version 1)
Quarter: 2022Q4

REPORT INFORMATION
  Report Type: Spontaneous
  Country: US (occurrence: US)
  Receive Date: 20221021
  Receipt Date: 20221021
  Transmission Date: 20230112
  Serious: Yes (Other)
  Sender: FDA-Public Use
  Company Number: US-Shilpa Medicare Limited-SML-US-2022-01337

PATIENT
  Age: 65 Year
  Sex: Male

DRUGS (10)
  1. IRINOTECAN [Suspect]
     Active Substance: IRINOTECAN
     Indication: Adenocarcinoma of colon
     Dosage: 4 CYCLES
  2. FLUOROURACIL [Suspect]
     Active Substance: FLUOROURACIL
     Indication: Adenocarcinoma of colon
     Dosage: 4 CYCLES
  3. LEUCOVORIN [Suspect]
     Active Substance: LEUCOVORIN
     Indication: Adenocarcinoma of colon
     Dosage: 4 CYCLES
  4. BEVACIZUMAB [Suspect]
     Active Substance: BEVACIZUMAB
     Indication: Adenocarcinoma of colon
     Dosage: 4 CYCLES
  5. CISPLATIN [Suspect]
     Active Substance: CISPLATIN
     Indication: Adenocarcinoma of colon
     Dosage: 2 CYCLES
  6. ETOPOSIDE [Suspect]
     Active Substance: ETOPOSIDE
     Indication: Adenocarcinoma of colon
     Dosage: 2 CYCLES
  7. ENCORAFENIB [Suspect]
     Active Substance: ENCORAFENIB
     Indication: Adenocarcinoma of colon
  8. CETUXIMAB [Suspect]
     Active Substance: CETUXIMAB
     Indication: Adenocarcinoma of colon
     Dosage: 25 BIWEEKLY CYCLES
     Dates: start: 201612
  9. BINIMETINIB [Suspect]
     Active Substance: BINIMETINIB
     Indication: Adenocarcinoma of colon
     Dosage: 18 BIWEEKLY CYCLES
     Dates: start: 201612
  10. VEMURAFENIB [Suspect]
     Active Substance: VEMURAFENIB
     Indication: Adenocarcinoma of colon
     Dosage: 25 BIWEEKLY CYCLES
     Dates: start: 201612

REACTIONS (2)
  - Disease progression [Unknown]
  - Drug ineffective [Unknown]
